FAERS Safety Report 25253904 (Version 4)
Quarter: 2025Q3

REPORT INFORMATION
  Report Type: Spontaneous
  Country: CN (occurrence: CN)
  Receive Date: 20250430
  Receipt Date: 20250725
  Transmission Date: 20251020
  Serious: Yes (Other)
  Sender: JOHNSON AND JOHNSON
  Company Number: CN-JNJFOC-20250438431

PATIENT
  Age: 83 Year

DRUGS (2)
  1. DARZALEX [Suspect]
     Active Substance: DARATUMUMAB
     Indication: Product used for unknown indication
     Route: 065
  2. DARZALEX [Suspect]
     Active Substance: DARATUMUMAB
     Route: 065

REACTIONS (2)
  - Thrombocytopenia [Recovering/Resolving]
  - Ecchymosis [Recovering/Resolving]
